FAERS Safety Report 22694784 (Version 2)
Quarter: 2024Q3

REPORT INFORMATION
  Report Type: Spontaneous
  Country: PT (occurrence: PT)
  Receive Date: 20230712
  Receipt Date: 20240715
  Transmission Date: 20241017
  Serious: Yes (Other)
  Sender: AUROBINDO
  Company Number: PT-INFARMED-E202306-1090

PATIENT
  Age: 59 Year
  Sex: Female
  Weight: 45 kg

DRUGS (4)
  1. AMOXICILLIN [Suspect]
     Active Substance: AMOXICILLIN
     Indication: Tonsillitis bacterial
     Dosage: 1000 MILLIGRAM, TWO TIMES A DAY(1000MG 12/12H)
     Route: 048
     Dates: start: 20230627, end: 20230627
  2. CLOXAZOLAM [Concomitant]
     Active Substance: CLOXAZOLAM
     Indication: Product used for unknown indication
     Dosage: UNK
     Route: 065
  3. DOTHIEPIN HYDROCHLORIDE [Concomitant]
     Active Substance: DOTHIEPIN HYDROCHLORIDE
     Indication: Product used for unknown indication
     Dosage: UNK
     Route: 065
  4. SIMVASTATIN [Concomitant]
     Active Substance: SIMVASTATIN
     Indication: Product used for unknown indication
     Dosage: UNK
     Route: 065

REACTIONS (1)
  - Eyelid oedema [Not Recovered/Not Resolved]

NARRATIVE: CASE EVENT DATE: 20230627
